FAERS Safety Report 8134430-1 (Version None)
Quarter: 2012Q1

REPORT INFORMATION
  Report Type: 
  Country: None (occurrence: None)
  Receive Date: 20120210
  Receipt Date: 20120127
  Transmission Date: 20120608
  Serious: Yes (Death)
  Sender: FDA-Public Use
  Company Number: 1179717

PATIENT
  Age: 45 Year
  Sex: Female

DRUGS (1)
  1. METOCLOPRAMIDE [Suspect]
     Indication: NAUSEA

REACTIONS (24)
  - ELECTROCARDIOGRAM ST SEGMENT ELEVATION [None]
  - HYPOTENSION [None]
  - MITRAL VALVE INCOMPETENCE [None]
  - HAEMOTHORAX [None]
  - VOMITING [None]
  - HEPATIC FAILURE [None]
  - RESPIRATORY ACIDOSIS [None]
  - ENDOCRINE DISORDER [None]
  - ADRENAL INSUFFICIENCY [None]
  - HAEMODYNAMIC INSTABILITY [None]
  - CARDIAC ARREST [None]
  - RESPIRATORY FAILURE [None]
  - COAGULOPATHY [None]
  - PROCEDURAL COMPLICATION [None]
  - AORTIC STENOSIS [None]
  - GENERAL PHYSICAL HEALTH DETERIORATION [None]
  - NAUSEA [None]
  - RENAL FAILURE [None]
  - AORTIC RUPTURE [None]
  - MIGRAINE [None]
  - HYPERHIDROSIS [None]
  - STRESS CARDIOMYOPATHY [None]
  - HYPERPYREXIA [None]
  - THYROTOXIC CRISIS [None]
